FAERS Safety Report 25278469 (Version 1)
Quarter: 2025Q2

REPORT INFORMATION
  Report Type: Spontaneous
  Country: US (occurrence: None)
  Receive Date: 20250506
  Receipt Date: 20250506
  Transmission Date: 20250716
  Serious: Yes (Disabling)
  Sender: FDA-CTU
  Company Number: None

PATIENT
  Age: 61 Year
  Sex: Female
  Weight: 67.5 kg

DRUGS (2)
  1. TRUVADA [Suspect]
     Active Substance: EMTRICITABINE\TENOFOVIR DISOPROXIL FUMARATE
     Indication: Chronic hepatitis B
     Dates: start: 20080901, end: 20241130
  2. DESCOVY [Suspect]
     Active Substance: EMTRICITABINE\TENOFOVIR ALAFENAMIDE FUMARATE

REACTIONS (5)
  - Gallbladder abscess [None]
  - Metabolic dysfunction-associated liver disease [None]
  - Hepatic cirrhosis [None]
  - Off label use [None]
  - Hepatitis B [None]

NARRATIVE: CASE EVENT DATE: 20080901
